FAERS Safety Report 13752656 (Version 7)
Quarter: 2018Q3

REPORT INFORMATION
  Report Type: Report from Study
  Country: US (occurrence: US)
  Receive Date: 20170713
  Receipt Date: 20180710
  Transmission Date: 20181010
  Serious: Yes (Hospitalization, Other)
  Sender: FDA-Public Use
  Company Number: US-ACTELION-A-NJ2017-151176

PATIENT
  Age: 33 Year
  Sex: Female
  Weight: 67.12 kg

DRUGS (3)
  1. VELETRI [Suspect]
     Active Substance: EPOPROSTENOL
     Indication: PULMONARY ARTERIAL HYPERTENSION
     Dosage: 10 NG/KG, PER MIN
     Route: 042
  2. COUMADIN [Concomitant]
     Active Substance: WARFARIN SODIUM
  3. ADCIRCA [Concomitant]
     Active Substance: TADALAFIL

REACTIONS (20)
  - Systemic lupus erythematosus [Unknown]
  - Nausea [Unknown]
  - Dizziness [Unknown]
  - Vomiting [Unknown]
  - Cardiac failure [Unknown]
  - Abdominal distension [Unknown]
  - Urinary tract infection [Unknown]
  - Catheter site discharge [Unknown]
  - Syncope [Unknown]
  - Chest pain [Unknown]
  - Weight increased [Unknown]
  - Condition aggravated [Unknown]
  - Hospitalisation [Unknown]
  - Fluid retention [Unknown]
  - Dyspnoea [Unknown]
  - Orthopnoea [Unknown]
  - Catheter site pain [Unknown]
  - Catheter site erythema [Unknown]
  - Headache [Unknown]
  - Weight decreased [Unknown]

NARRATIVE: CASE EVENT DATE: 201801
